FAERS Safety Report 6347616-3 (Version None)
Quarter: 2009Q3

REPORT INFORMATION
  Report Type: 
  Country: None (occurrence: None)
  Receive Date: 20090910
  Receipt Date: 20090812
  Transmission Date: 20100115
  Serious: No
  Sender: FDA-Public Use
  Company Number: US-BAYER-200913448BCC

PATIENT
  Age: 74 Year
  Sex: Female

DRUGS (6)
  1. ALEVE CAPLETS ARTHRITIS [Suspect]
     Indication: ARTHRITIS
     Dosage: TOTAL DAILY DOSE: 880 MG  UNIT DOSE: 220 MG
     Route: 048
     Dates: start: 20090701, end: 20090701
  2. ALEVE CAPLETS ARTHRITIS [Suspect]
     Dosage: TOTAL DAILY DOSE: 660 MG  UNIT DOSE: 220 MG
     Route: 048
     Dates: start: 20090701, end: 20090101
  3. ALEVE CAPLETS ARTHRITIS [Suspect]
     Dosage: TOTAL DAILY DOSE: 1320 MG  UNIT DOSE: 220 MG
     Route: 048
     Dates: start: 20090101, end: 20090101
  4. ALEVE CAPLETS ARTHRITIS [Suspect]
     Dosage: TOTAL DAILY DOSE: 660 MG  UNIT DOSE: 220 MG
     Route: 048
     Dates: start: 20090812
  5. LISINOPRIL [Concomitant]
     Route: 065
  6. RED YEAST RICE [Concomitant]
     Route: 065

REACTIONS (1)
  - ARTHRITIS [None]
